FAERS Safety Report 9798620 (Version 1)
Quarter: 2014Q1

REPORT INFORMATION
  Report Type: Spontaneous
  Country: US (occurrence: US)
  Receive Date: 20140106
  Receipt Date: 20140106
  Transmission Date: 20141002
  Serious: No
  Sender: FDA-Public Use
  Company Number: US-PFIZER INC-2014002550

PATIENT
  Sex: Male

DRUGS (4)
  1. NEURONTIN [Suspect]
     Indication: NERVE INJURY
     Dosage: 1200 MG (TAKING 4 OF 300MG), 1X/DAY
  2. NEURONTIN [Suspect]
     Indication: PERIPHERAL NERVE INJURY
     Dosage: 100 MG, 4X/DAY
  3. NEURONTIN [Suspect]
     Dosage: 300 MG (TAKING 3 OF 100MG IN THE MORNING), 1X/DAY
  4. NEURONTIN [Suspect]
     Dosage: 300 MG (BY TAKING ONE 100MG IN MORNING AND TWO 100MG AT NIGHT), 1X/DAY

REACTIONS (6)
  - Off label use [Unknown]
  - Dizziness [Unknown]
  - Syncope [Unknown]
  - Insomnia [Unknown]
  - Irritability [Unknown]
  - Anger [Unknown]
